FAERS Safety Report 8473779-X (Version None)
Quarter: 2012Q2

REPORT INFORMATION
  Report Type: 
  Country: None (occurrence: None)
  Receive Date: 20120628
  Receipt Date: 20111107
  Transmission Date: 20120825
  Serious: Yes (Death)
  Sender: FDA-Public Use
  Company Number: US-MYLANLABS-2011S1023070

PATIENT
  Age: 56 Year
  Sex: Female

DRUGS (8)
  1. CALCIUM [Concomitant]
  2. DEPAKOTE [Concomitant]
  3. CLOZAPINE [Suspect]
     Indication: SCHIZOPHRENIA
     Route: 048
     Dates: start: 20091001
  4. SYNTHROID [Concomitant]
  5. LOVENOX [Concomitant]
  6. DITROPAN XL [Concomitant]
  7. MIRALAX /00754501/ [Concomitant]
  8. WARFARIN SODIUM [Concomitant]

REACTIONS (1)
  - DEATH [None]
